FAERS Safety Report 9050645 (Version 1)
Quarter: 2013Q1

REPORT INFORMATION
  Report Type: Spontaneous
  Country: DE (occurrence: DE)
  Receive Date: 20130205
  Receipt Date: 20130205
  Transmission Date: 20140127
  Serious: Yes (Hospitalization, Disabling, Other)
  Sender: FDA-Public Use
  Company Number: DE-PFIZER INC-2012312377

PATIENT
  Age: 76 Year
  Sex: Female

DRUGS (2)
  1. LYRICA [Suspect]
     Indication: POLYNEUROPATHY
     Dosage: 2X250 MG, UNK
  2. LYRICA [Suspect]
     Dosage: 225 MG, 75-0-150
     Dates: start: 201201

REACTIONS (1)
  - Scotoma [Not Recovered/Not Resolved]
